FAERS Safety Report 8272196-5 (Version None)
Quarter: 2012Q2

REPORT INFORMATION
  Report Type: 
  Country: None (occurrence: None)
  Receive Date: 20120410
  Receipt Date: 20120402
  Transmission Date: 20120825
  Serious: Yes (Hospitalization)
  Sender: FDA-Public Use
  Company Number: JP-TEVA-331757ISR

PATIENT
  Age: 51 Year
  Sex: Female

DRUGS (3)
  1. COLECALCIFEROL [Concomitant]
     Indication: PUSTULAR PSORIASIS
     Route: 061
  2. PREDNISOLONE [Suspect]
     Indication: ERYTHEMA MULTIFORME
     Dosage: 0.5 MG/KG DAILY
     Route: 042
  3. ETRETINATE [Suspect]
     Indication: PUSTULAR PSORIASIS
     Dosage: 1 MG/KG
     Route: 048

REACTIONS (2)
  - PSORIASIS [None]
  - HEPATIC FUNCTION ABNORMAL [None]
